FAERS Safety Report 21995333 (Version 1)
Quarter: 2023Q1

REPORT INFORMATION
  Report Type: Spontaneous
  Country: CN (occurrence: CN)
  Receive Date: 20230215
  Receipt Date: 20230215
  Transmission Date: 20230417
  Serious: Yes (Hospitalization)
  Sender: FDA-Public Use
  Company Number: None

PATIENT
  Age: 51 Year
  Sex: Female
  Weight: 52 kg

DRUGS (2)
  1. CYCLOPHOSPHAMIDE [Suspect]
     Active Substance: CYCLOPHOSPHAMIDE
     Indication: Breast cancer female
     Dosage: 1 G, EVERY 21 DAYS (ONE CYCLE), FOURTH CYCLES OF CHEMOTHERAPY, AS PART OF TC REGIMEN
     Route: 041
     Dates: start: 20220505, end: 20220808
  2. DOCETAXEL [Suspect]
     Active Substance: DOCETAXEL
     Indication: Breast cancer female
     Dosage: 120 MG, EVERY 21 DAYS (ONE CYCLE), FOURTH CYCLES OF CHEMOTHERAPY, AS PART OF TC REGIMEN
     Route: 041
     Dates: start: 20220505, end: 20220808

REACTIONS (2)
  - Osteoporosis [Recovering/Resolving]
  - Bone pain [Recovering/Resolving]

NARRATIVE: CASE EVENT DATE: 20230112
